FAERS Safety Report 11627542 (Version 1)
Quarter: 2015Q4

REPORT INFORMATION
  Report Type: Spontaneous
  Country: US (occurrence: US)
  Receive Date: 20151014
  Receipt Date: 20151014
  Transmission Date: 20160304
  Serious: No
  Sender: FDA-Public Use
  Company Number: US-PAR PHARMACEUTICAL, INC-2015SCPR014085

PATIENT

DRUGS (1)
  1. CHOLESTYRAMINE. [Suspect]
     Active Substance: CHOLESTYRAMINE
     Indication: DIARRHOEA
     Dosage: UNK, BID
     Route: 048
     Dates: start: 20150327

REACTIONS (4)
  - Vomiting [Unknown]
  - Malaise [Unknown]
  - Abnormal faeces [Unknown]
  - Product use issue [Unknown]

NARRATIVE: CASE EVENT DATE: 2015
